FAERS Safety Report 4407487-9 (Version None)
Quarter: 2004Q3

REPORT INFORMATION
  Report Type: 
  Country: None (occurrence: None)
  Receive Date: 20040721
  Receipt Date: 20040514
  Transmission Date: 20050211
  Serious: Yes (Death)
  Sender: FDA-Public Use
  Company Number: 2004-BP-03760RP

PATIENT
  Age: 81 Year
  Sex: Female

DRUGS (1)
  1. MICARDIS [Suspect]
     Indication: HYPERTENSION
     Dosage: (80 MG, 1 TAB OD) PO
     Route: 048
     Dates: start: 20030414

REACTIONS (1)
  - CEREBROVASCULAR ACCIDENT [None]
